FAERS Safety Report 25790451 (Version 1)
Quarter: 2025Q3

REPORT INFORMATION
  Report Type: Spontaneous
  Country: EU (occurrence: EU)
  Receive Date: 20250911
  Receipt Date: 20250911
  Transmission Date: 20251020
  Serious: Yes (Other)
  Sender: HETERO
  Company Number: None

PATIENT
  Age: 93 Year
  Sex: Female

DRUGS (5)
  1. GABAPENTIN [Suspect]
     Active Substance: GABAPENTIN
     Indication: Product used for unknown indication
     Route: 048
     Dates: start: 20250615, end: 20250811
  2. CINACALCET [Concomitant]
     Active Substance: CINACALCET
     Indication: Product used for unknown indication
     Route: 048
     Dates: start: 20250615
  3. CINACALCET [Concomitant]
     Active Substance: CINACALCET
     Route: 048
     Dates: start: 20250615
  4. GABAPENTIN [Concomitant]
     Active Substance: GABAPENTIN
     Indication: Product used for unknown indication
     Route: 048
  5. CINACALCET [Concomitant]
     Active Substance: CINACALCET
     Indication: Product used for unknown indication
     Route: 048
     Dates: start: 20250615

REACTIONS (2)
  - Hypertensive crisis [Recovered/Resolved]
  - Increased dose administered [Unknown]

NARRATIVE: CASE EVENT DATE: 20250615
